FAERS Safety Report 8121616-5 (Version None)
Quarter: 2012Q1

REPORT INFORMATION
  Report Type: 
  Country: None (occurrence: None)
  Receive Date: 20120208
  Receipt Date: 20120131
  Transmission Date: 20120608
  Serious: No
  Sender: FDA-Public Use
  Company Number: US-B.I. PHARMACEUTICALS,INC./RIDGEFIELD-2012-BP-01934BP

PATIENT
  Sex: Female

DRUGS (10)
  1. ASCORBIC ACID [Concomitant]
     Indication: PROPHYLAXIS
     Dosage: 500 MG
     Route: 048
     Dates: start: 20070101
  2. COQ 10 [Concomitant]
     Indication: PROPHYLAXIS
     Dosage: 30 MG
     Route: 048
     Dates: start: 20070101
  3. LISINOPRIL [Concomitant]
     Indication: HYPERTENSION
     Dosage: 10 MG
     Route: 048
     Dates: start: 20090101
  4. METOPROLOL [Concomitant]
     Indication: HYPERTENSION
     Dosage: 100 MG
     Route: 048
     Dates: start: 20090101
  5. VITAMIN D [Concomitant]
     Indication: PROPHYLAXIS
     Dosage: 400 MG
     Route: 048
     Dates: start: 20070101
  6. FISH OIL [Concomitant]
     Indication: PROPHYLAXIS
     Dosage: 2000 MG
     Route: 048
     Dates: start: 20070101
  7. PRADAXA [Suspect]
     Indication: ATRIAL FIBRILLATION
     Dosage: 300 MG
     Route: 048
     Dates: start: 20111101
  8. CALCIUM WITH VITAMIN D [Concomitant]
     Indication: PROPHYLAXIS
     Dosage: 1200 MG
     Route: 048
     Dates: start: 20070101
  9. FOLIC ACID [Concomitant]
     Indication: PROPHYLAXIS
     Dosage: 800 MG
     Route: 048
     Dates: start: 20070101
  10. VITAMIN B COMPLEX CAP [Concomitant]
     Indication: PROPHYLAXIS
     Route: 048
     Dates: start: 20070101

REACTIONS (3)
  - RENAL DISORDER [None]
  - ARTERIOSCLEROSIS [None]
  - BLOOD DISORDER [None]
